FAERS Safety Report 24228787 (Version 2)
Quarter: 2024Q3

REPORT INFORMATION
  Report Type: Report from Study
  Country: CA (occurrence: CA)
  Receive Date: 20240820
  Receipt Date: 20240826
  Transmission Date: 20241016
  Serious: Yes (Hospitalization, Other)
  Sender: SK LIFE SCIENCE
  Company Number: CA-SK LIFE SCIENCE, INC-SKPVG-2024-001488

PATIENT

DRUGS (13)
  1. XCOPRI [Suspect]
     Active Substance: CENOBAMATE
     Indication: Epilepsy
     Dosage: 12.5 MILLIGRAM, DAILY
     Route: 065
     Dates: start: 20240419, end: 2024
  2. XCOPRI [Suspect]
     Active Substance: CENOBAMATE
     Dosage: 25 MILLIGRAM, DAILY
     Route: 048
     Dates: start: 2024, end: 2024
  3. XCOPRI [Suspect]
     Active Substance: CENOBAMATE
     Dosage: 50 MILLIGRAM, DAILY
     Route: 048
     Dates: start: 2024, end: 2024
  4. XCOPRI [Suspect]
     Active Substance: CENOBAMATE
     Dosage: 100 MILLIGRAM, DAILY
     Route: 048
     Dates: start: 2024, end: 20240610
  5. XCOPRI [Suspect]
     Active Substance: CENOBAMATE
     Dosage: 125 MILLIGRAM, QD
     Route: 048
     Dates: start: 20240611, end: 20240704
  6. XCOPRI [Suspect]
     Active Substance: CENOBAMATE
     Dosage: 100 MILLIGRAM, QD
     Route: 048
     Dates: start: 20240705, end: 20240707
  7. XCOPRI [Suspect]
     Active Substance: CENOBAMATE
     Dosage: 112.5 MILLIGRAM, QD
     Route: 048
     Dates: start: 20240708
  8. PHENOBARBITAL [Suspect]
     Active Substance: PHENOBARBITAL
     Indication: Product used for unknown indication
     Dosage: UNK
     Route: 065
  9. TOPAMAX [Concomitant]
     Active Substance: TOPIRAMATE
     Indication: Product used for unknown indication
     Dosage: UNK
     Route: 065
  10. BRIVARACETAM [Concomitant]
     Active Substance: BRIVARACETAM
     Indication: Product used for unknown indication
     Dosage: UNK
     Route: 065
  11. BANZEL [Concomitant]
     Active Substance: RUFINAMIDE
     Indication: Product used for unknown indication
     Dosage: UNK
     Route: 065
  12. CLOBAZAM [Concomitant]
     Active Substance: CLOBAZAM
     Indication: Product used for unknown indication
     Dosage: UNK
     Route: 065
  13. EFFEXOR [Concomitant]
     Active Substance: VENLAFAXINE HYDROCHLORIDE
     Indication: Product used for unknown indication
     Dosage: UNK
     Route: 065

REACTIONS (6)
  - Epilepsy [Unknown]
  - Toxicity to various agents [Recovering/Resolving]
  - Depressed level of consciousness [Recovering/Resolving]
  - Lethargy [Recovering/Resolving]
  - Drug interaction [Recovering/Resolving]
  - Off label use [Unknown]

NARRATIVE: CASE EVENT DATE: 20240101
